FAERS Safety Report 5287902-1 (Version None)
Quarter: 2007Q2

REPORT INFORMATION
  Report Type: 
  Country: None (occurrence: None)
  Receive Date: 20070405
  Receipt Date: 20070321
  Transmission Date: 20071010
  Serious: Yes (Other)
  Sender: FDA-Public Use
  Company Number: FR-JNJFOC-20070305022

PATIENT

DRUGS (3)
  1. REMICADE [Suspect]
     Route: 042
  2. REMICADE [Suspect]
     Indication: DRUG USE FOR UNKNOWN INDICATION
     Dosage: 10 INFUSIONS RECEIVED FOR 2.7 YEARS.
     Route: 042
  3. IMMUNOSUPPRESSOR [Concomitant]

REACTIONS (1)
  - PSORIASIS [None]
